FAERS Safety Report 6830603-6 (Version None)
Quarter: 2010Q3

REPORT INFORMATION
  Report Type: 
  Country: None (occurrence: None)
  Receive Date: 20100709
  Receipt Date: 20100709
  Transmission Date: 20110219
  Serious: Yes (Life-Threatening)
  Sender: FDA-Public Use
  Company Number: None

PATIENT
  Age: 62 Year
  Sex: Female
  Weight: 90.2658 kg

DRUGS (1)
  1. LISINOPRIL AND HYDROCHLOROTHIAZIDE [Suspect]
     Indication: HYPERTENSION
     Dosage: 2 TABLETS DAILY MOUTH
     Route: 048
     Dates: start: 20100614, end: 20100619

REACTIONS (10)
  - ABDOMINAL DISTENSION [None]
  - ASTHMA [None]
  - COUGH [None]
  - DYSPHONIA [None]
  - DYSPNOEA [None]
  - HYPERTENSION [None]
  - LIP SWELLING [None]
  - PAIN IN EXTREMITY [None]
  - PALPITATIONS [None]
  - SWOLLEN TONGUE [None]
